FAERS Safety Report 10331183 (Version 2)
Quarter: 2014Q3

REPORT INFORMATION
  Report Type: Spontaneous
  Country: US (occurrence: US)
  Receive Date: 20140722
  Receipt Date: 20140731
  Transmission Date: 20150326
  Serious: Yes (Hospitalization)
  Sender: FDA-Public Use
  Company Number: US-BEH-2014043898

PATIENT
  Age: 61 Year
  Sex: Male
  Weight: 80 kg

DRUGS (25)
  1. DIPHENHYDRAMINE [Concomitant]
     Active Substance: DIPHENHYDRAMINE
  2. OXYGEN. [Concomitant]
     Active Substance: OXYGEN
  3. ALLOPURINOL. [Concomitant]
     Active Substance: ALLOPURINOL
  4. PREDNISONE. [Concomitant]
     Active Substance: PREDNISONE
  5. VITAMIN B12 [Concomitant]
     Active Substance: CYANOCOBALAMIN
  6. TRAZODONE [Concomitant]
     Active Substance: TRAZODONE HYDROCHLORIDE
  7. ALL OTHER THERAPEUTIC PRODUCTS [Concomitant]
     Active Substance: UNSPECIFIED INGREDIENT
  8. LMX [Concomitant]
  9. AUGMENTIN [Concomitant]
     Active Substance: AMOXICILLIN\CLAVULANATE POTASSIUM
  10. FLUTICASONE [Concomitant]
     Active Substance: FLUTICASONE\FLUTICASONE PROPIONATE
  11. EPIPEN [Concomitant]
     Active Substance: EPINEPHRINE
  12. ZYVOX [Concomitant]
     Active Substance: LINEZOLID
  13. HIZENTRA [Suspect]
     Active Substance: HUMAN IMMUNOGLOBULIN G
     Indication: IMMUNODEFICIENCY COMMON VARIABLE
     Dosage: MULTIPLE SITES OVER 1-2 HOURS
     Route: 058
  14. SODIUM CHLORIDE. [Concomitant]
     Active Substance: SODIUM CHLORIDE
  15. LIDOCAINE. [Concomitant]
     Active Substance: LIDOCAINE
  16. LEVAQUIN [Concomitant]
     Active Substance: LEVOFLOXACIN
  17. XOPENEX [Concomitant]
     Active Substance: LEVALBUTEROL HYDROCHLORIDE
  18. SINGULAIR [Concomitant]
     Active Substance: MONTELUKAST SODIUM
  19. AMBIEN [Concomitant]
     Active Substance: ZOLPIDEM TARTRATE
  20. MEROPENEM. [Concomitant]
     Active Substance: MEROPENEM
  21. ARALAST [Concomitant]
     Active Substance: .ALPHA.1-PROTEINASE INHIBITOR HUMAN
  22. CEPHALEXIN. [Concomitant]
     Active Substance: CEPHALEXIN
  23. ADVAIR HFA [Concomitant]
     Active Substance: FLUTICASONE PROPIONATE\SALMETEROL XINAFOATE
  24. DILTIAZEM HYDROCHLORIDE EXTENDED RELEASE [Concomitant]
     Active Substance: DILTIAZEM HYDROCHLORIDE
  25. HIZENTRA [Suspect]
     Active Substance: HUMAN IMMUNOGLOBULIN G
     Dosage: MULTIPLE SITES OVER 1-2 HOURS
     Route: 058

REACTIONS (2)
  - Fall [Unknown]
  - Dyspnoea [Unknown]

NARRATIVE: CASE EVENT DATE: 20140707
